FAERS Safety Report 11700956 (Version 1)
Quarter: 2015Q4

REPORT INFORMATION
  Report Type: Spontaneous
  Country: JP (occurrence: JP)
  Receive Date: 20151105
  Receipt Date: 20151105
  Transmission Date: 20160304
  Serious: Yes (Other)
  Sender: FDA-Public Use
  Company Number: JP-JNJFOC-20151022129

PATIENT
  Age: 43 Year
  Sex: Female
  Weight: 54 kg

DRUGS (4)
  1. REMICADE [Suspect]
     Active Substance: INFLIXIMAB
     Indication: COLITIS ULCERATIVE
     Dosage: 4TH DOSE??18 DAYS
     Route: 042
     Dates: start: 20121118
  2. SALAZOPYRIN [Concomitant]
     Active Substance: SULFASALAZINE
     Dosage: TOTAL 6000 MG
     Route: 048
     Dates: start: 200703
  3. REMICADE [Suspect]
     Active Substance: INFLIXIMAB
     Indication: COLITIS ULCERATIVE
     Dosage: 3 DAYS
     Route: 042
     Dates: start: 20120809
  4. REMICADE [Suspect]
     Active Substance: INFLIXIMAB
     Indication: COLITIS ULCERATIVE
     Dosage: 22ND TIME
     Route: 042
     Dates: start: 20150907, end: 20150907

REACTIONS (1)
  - Lymphoid tissue hyperplasia [Unknown]

NARRATIVE: CASE EVENT DATE: 20150911
